FAERS Safety Report 6639647-0 (Version None)
Quarter: 2010Q1

REPORT INFORMATION
  Report Type: 
  Country: None (occurrence: None)
  Receive Date: 20100315
  Receipt Date: 20100301
  Transmission Date: 20100710
  Serious: Yes (Hospitalization)
  Sender: FDA-Public Use
  Company Number: DSA_42702_2010

PATIENT
  Age: 52 Year
  Sex: Male

DRUGS (1)
  1. DICLOFENAC SODIUM [Suspect]
     Indication: BACK PAIN
     Dosage: 75 MG QD INTRAMUSCULAR, DF INTRAMUSCULAR
     Route: 030

REACTIONS (10)
  - ERYTHEMA [None]
  - FAT NECROSIS [None]
  - INJECTION SITE PAIN [None]
  - INJECTION SITE PALLOR [None]
  - LIVIDITY [None]
  - POSTOPERATIVE WOUND INFECTION [None]
  - SKIN HAEMORRHAGE [None]
  - SKIN NECROSIS [None]
  - STAPHYLOCOCCAL INFECTION [None]
  - WOUND DEHISCENCE [None]
